FAERS Safety Report 7903355-6 (Version None)
Quarter: 2011Q4

REPORT INFORMATION
  Report Type: 
  Country: None (occurrence: None)
  Receive Date: 20111109
  Receipt Date: 20111104
  Transmission Date: 20120403
  Serious: Yes (Hospitalization, Other)
  Sender: FDA-Public Use
  Company Number: US-PFIZER INC-2011135295

PATIENT
  Sex: Male

DRUGS (3)
  1. CHANTIX [Suspect]
     Indication: SMOKING CESSATION THERAPY
     Dosage: 1 MG, UNK
     Dates: start: 20070901, end: 20070101
  2. CHANTIX [Suspect]
     Dosage: 1 MG, UNK
     Dates: start: 20100429, end: 20100606
  3. CHANTIX [Suspect]
     Dosage: 1 MG, UNK
     Dates: start: 20090101, end: 20090101

REACTIONS (10)
  - CONFUSIONAL STATE [None]
  - HALLUCINATION [None]
  - PARANOIA [None]
  - MENTAL DISORDER [None]
  - PSYCHOTIC DISORDER [None]
  - MENTAL IMPAIRMENT [None]
  - DELUSION [None]
  - AMNESIA [None]
  - ANXIETY [None]
  - DEPRESSION [None]
